FAERS Safety Report 21509220 (Version 4)
Quarter: 2022Q4

REPORT INFORMATION
  Report Type: Spontaneous
  Country: US (occurrence: US)
  Receive Date: 20221026
  Receipt Date: 20221219
  Transmission Date: 20230113
  Serious: No
  Sender: FDA-Public Use
  Company Number: US-JNJFOC-20221051072

PATIENT
  Sex: Female

DRUGS (3)
  1. OPSUMIT [Suspect]
     Active Substance: MACITENTAN
     Indication: Product used for unknown indication
     Route: 048
  2. UPTRAVI [Suspect]
     Active Substance: SELEXIPAG
     Indication: Product used for unknown indication
     Route: 048
     Dates: start: 20221017
  3. UPTRAVI [Suspect]
     Active Substance: SELEXIPAG
     Dosage: 200MCG AM AND 400MCG PM
     Route: 048

REACTIONS (2)
  - Headache [Unknown]
  - Diarrhoea [Recovered/Resolved]
